FAERS Safety Report 4713596-7 (Version None)
Quarter: 2005Q3

REPORT INFORMATION
  Report Type: 
  Country: None (occurrence: None)
  Receive Date: 20050712
  Receipt Date: 20050630
  Transmission Date: 20060218
  Serious: Yes (Hospitalization)
  Sender: FDA-Public Use
  Company Number: 2005-01265

PATIENT
  Age: 56 Year
  Sex: Male

DRUGS (8)
  1. IMMUCYST [Suspect]
     Indication: BLADDER CANCER
     Dosage: (81.0 MG) I.VES.,BLADDER
     Dates: start: 20050323, end: 20050526
  2. NIFEDIPINE [Concomitant]
  3. THIAMAZOLE [Concomitant]
  4. CARBAZOCHROME SODIUM SULFONATE [Concomitant]
  5. TRANEXAMIC ACID [Concomitant]
  6. PROPIVERINE HYDROCHLORIDE [Concomitant]
  7. LOXOPROFEN SODIUM [Concomitant]
  8. KETOPROFEN [Concomitant]

REACTIONS (2)
  - REITER'S SYNDROME [None]
  - WHITE BLOOD CELL COUNT INCREASED [None]
